FAERS Safety Report 8773462 (Version 2)
Quarter: 2012Q4

REPORT INFORMATION
  Report Type: 
  Country: US (occurrence: US)
  Receive Date: 20120907
  Receipt Date: 20121002
  Transmission Date: 20130627
  Serious: No
  Sender: FDA-Public Use
  Company Number: US-VERTEX PHARMACEUTICAL INC.-AE-2012-008987

PATIENT
  Age: 58 None
  Sex: Male
  Weight: 75 kg

DRUGS (7)
  1. INCIVEK [Suspect]
     Indication: HEPATITIS C
     Dosage: 750 mg, tid
     Route: 048
     Dates: start: 20120611, end: 20120830
  2. RIBAVIRIN [Suspect]
     Indication: HEPATITIS C
     Dosage: 1000 mg, bid
     Route: 048
     Dates: start: 20120611, end: 20120830
  3. PEGASYS [Suspect]
     Indication: HEPATITIS C
     Dosage: 180 ?g, UNK
     Route: 058
     Dates: start: 20120611, end: 20120830
  4. OXYCONTIN [Concomitant]
     Indication: PAIN
     Dosage: 10 mg, bid
     Route: 048
  5. ALPRAZOLAM [Concomitant]
     Dosage: 1 mg, qd
     Route: 048
  6. BYSTOLIC [Concomitant]
     Indication: HYPERTENSION
     Route: 048
  7. ADVIL                              /00044201/ [Concomitant]
     Indication: PREMEDICATION
     Route: 048

REACTIONS (20)
  - Headache [Recovered/Resolved]
  - Weight increased [Not Recovered/Not Resolved]
  - Arthralgia [Not Recovered/Not Resolved]
  - Mood swings [Recovered/Resolved]
  - Back pain [Not Recovered/Not Resolved]
  - Furuncle [Not Recovered/Not Resolved]
  - Hyperhidrosis [Not Recovered/Not Resolved]
  - Skin odour abnormal [Recovered/Resolved]
  - Contusion [Not Recovered/Not Resolved]
  - Abnormal faeces [Recovered/Resolved]
  - Malaise [Not Recovered/Not Resolved]
  - Feeling abnormal [Not Recovered/Not Resolved]
  - Abasia [Recovered/Resolved]
  - Constipation [Recovered/Resolved]
  - Asthenia [Not Recovered/Not Resolved]
  - Rash pruritic [Not Recovered/Not Resolved]
  - Diarrhoea [Recovered/Resolved]
  - Vomiting [Recovered/Resolved]
  - Painful defaecation [Not Recovered/Not Resolved]
  - Anaemia [Unknown]
